FAERS Safety Report 15690086 (Version 1)
Quarter: 2018Q4

REPORT INFORMATION
  Report Type: Spontaneous
  Country: BR (occurrence: BR)
  Receive Date: 20181205
  Receipt Date: 20181205
  Transmission Date: 20190205
  Serious: Yes (Hospitalization)
  Sender: FDA-Public Use
  Company Number: BR-PFIZER INC-2018456386

PATIENT
  Sex: Male

DRUGS (1)
  1. LORAX [Suspect]
     Active Substance: LORAZEPAM
     Dosage: 1 MG, 2X/DAY

REACTIONS (7)
  - Product use issue [Unknown]
  - Sneezing [Recovered/Resolved]
  - Rhinitis [Recovered/Resolved]
  - Intentional product misuse [Recovered/Resolved]
  - Tachycardia [Not Recovered/Not Resolved]
  - Flatulence [Recovered/Resolved]
  - Drug effect incomplete [Recovered/Resolved]
